FAERS Safety Report 25726080 (Version 1)
Quarter: 2025Q3

REPORT INFORMATION
  Report Type: Spontaneous
  Country: CA (occurrence: CA)
  Receive Date: 20250826
  Receipt Date: 20250826
  Transmission Date: 20251020
  Serious: Yes (Other)
  Sender: CELLTRION
  Company Number: CA-CELLTRION INC.-2025CA029614

PATIENT

DRUGS (2)
  1. INFLIXIMAB [Suspect]
     Active Substance: INFLIXIMAB
     Indication: Colitis ulcerative
     Route: 042
  2. INFLIXIMAB [Suspect]
     Active Substance: INFLIXIMAB
     Route: 042

REACTIONS (5)
  - Rib fracture [Not Recovered/Not Resolved]
  - Condition aggravated [Not Recovered/Not Resolved]
  - Contusion [Not Recovered/Not Resolved]
  - Fall [Not Recovered/Not Resolved]
  - Rash [Not Recovered/Not Resolved]
